FAERS Safety Report 4388950-6 (Version None)
Quarter: 2004Q2

REPORT INFORMATION
  Report Type: 
  Country: None (occurrence: None)
  Receive Date: 20040628
  Receipt Date: 20040616
  Transmission Date: 20050107
  Serious: Yes (Other)
  Sender: FDA-Public Use
  Company Number: HQWYE512217JUN04

PATIENT
  Age: 47 Year
  Sex: Female
  Weight: 45.4 kg

DRUGS (2)
  1. EFFEXOR XR [Suspect]
     Indication: MENOPAUSAL SYMPTOMS
     Dosage: 75 MG 1X PER 1 DAY, ORAL
     Route: 048
     Dates: start: 20000101, end: 20031125
  2. TAMOXIFEN CITRATE [Concomitant]

REACTIONS (7)
  - ABNORMAL BEHAVIOUR [None]
  - AGGRESSION [None]
  - DRUG WITHDRAWAL SYNDROME [None]
  - REFUSAL OF TREATMENT BY PATIENT [None]
  - RELATIONSHIP BREAKDOWN [None]
  - ROAD TRAFFIC ACCIDENT [None]
  - SUICIDAL IDEATION [None]
